FAERS Safety Report 6219322-7 (Version None)
Quarter: 2009Q2

REPORT INFORMATION
  Report Type: 
  Country: None (occurrence: None)
  Receive Date: 20090609
  Receipt Date: 20090603
  Transmission Date: 20091009
  Serious: Yes (Other)
  Sender: FDA-Public Use
  Company Number: BR-ASTRAZENECA-2009UW14242

PATIENT
  Age: 27 Year
  Sex: Female

DRUGS (2)
  1. NEXIUM [Suspect]
     Indication: HIATUS HERNIA
     Route: 048
     Dates: start: 20090524, end: 20090601
  2. BROMOPRIDE [Concomitant]
     Indication: GASTROOESOPHAGEAL REFLUX DISEASE
     Route: 048
     Dates: start: 20080301

REACTIONS (6)
  - BACK PAIN [None]
  - DYSPEPSIA [None]
  - HOT FLUSH [None]
  - MENORRHAGIA [None]
  - NERVOUSNESS [None]
  - TREMOR [None]
